FAERS Safety Report 6488563-6 (Version None)
Quarter: 2009Q4

REPORT INFORMATION
  Report Type: 
  Country: None (occurrence: None)
  Receive Date: 20091210
  Receipt Date: 20090929
  Transmission Date: 20100525
  Serious: No
  Sender: FDA-Public Use
  Company Number: US-BAYER-200934607NA

PATIENT
  Age: 66 Year
  Sex: Female
  Weight: 69 kg

DRUGS (4)
  1. ULTRAVIST 370 [Suspect]
     Indication: COMPUTERISED TOMOGRAM ABDOMEN
     Dosage: TOTAL DAILY DOSE: 150 ML  UNIT DOSE: 150 ML
     Route: 042
     Dates: start: 20090729, end: 20090729
  2. VICODIN [Concomitant]
  3. OMEPRAZOLE [Concomitant]
  4. GASTROVIST [Concomitant]
     Route: 048
     Dates: start: 20090729, end: 20090729

REACTIONS (2)
  - PRURITUS [None]
  - URTICARIA [None]
